FAERS Safety Report 11788801 (Version 1)
Quarter: 2015Q4

REPORT INFORMATION
  Report Type: Spontaneous
  Country: US (occurrence: None)
  Receive Date: 20151130
  Receipt Date: 20151130
  Transmission Date: 20160305
  Serious: No
  Sender: FDA-Public Use
  Company Number: None

PATIENT
  Age: 9 Year
  Sex: Male
  Weight: 21.77 kg

DRUGS (3)
  1. GUANFACINE ER [Suspect]
     Active Substance: GUANFACINE
     Indication: ATTENTION DEFICIT/HYPERACTIVITY DISORDER
     Route: 048
     Dates: start: 20151122, end: 20151124
  2. VAYARIN [Concomitant]
     Active Substance: DOCONEXENT\ICOSAPENT\PHOSPHATIDYL SERINE
  3. CONCERTA (METHYLPHENIDATE ER) [Concomitant]

REACTIONS (4)
  - Drug ineffective [None]
  - Aggression [None]
  - Product substitution issue [None]
  - Oppositional defiant disorder [None]

NARRATIVE: CASE EVENT DATE: 20151123
